FAERS Safety Report 14812953 (Version 1)
Quarter: 2018Q2

REPORT INFORMATION
  Report Type: Spontaneous
  Country: FR (occurrence: FR)
  Receive Date: 20180426
  Receipt Date: 20180426
  Transmission Date: 20180711
  Serious: Yes (Other)
  Sender: FDA-Public Use
  Company Number: FR-MERCK KGAA-2046536

PATIENT
  Age: 68 Year
  Sex: Female

DRUGS (1)
  1. NOVOTHYROX [Suspect]
     Active Substance: LEVOTHYROXINE SODIUM
     Indication: THYROID DISORDER
     Dates: end: 201707

REACTIONS (16)
  - Social avoidant behaviour [None]
  - Muscle spasms [Recovering/Resolving]
  - Psychiatric symptom [None]
  - Depression [None]
  - Pain [None]
  - Middle insomnia [Recovering/Resolving]
  - Myalgia [None]
  - Walking aid user [Recovering/Resolving]
  - Morbid thoughts [Recovering/Resolving]
  - Apathy [None]
  - Fatigue [Recovering/Resolving]
  - Insomnia [None]
  - Loss of personal independence in daily activities [None]
  - Arthralgia [None]
  - Gait disturbance [None]
  - Impaired quality of life [None]

NARRATIVE: CASE EVENT DATE: 201705
